FAERS Safety Report 8207126-5 (Version None)
Quarter: 2012Q1

REPORT INFORMATION
  Report Type: 
  Country: None (occurrence: None)
  Receive Date: 20120314
  Receipt Date: 20120308
  Transmission Date: 20120608
  Serious: No
  Sender: FDA-Public Use
  Company Number: US-PFIZER INC-2012063258

PATIENT
  Sex: Female
  Weight: 66.7 kg

DRUGS (2)
  1. DEPO-PROVERA [Suspect]
     Indication: CONTRACEPTION
     Dosage: UNK
     Dates: start: 20120213
  2. PLAN B ONE-STEP [Suspect]
     Indication: CONTRACEPTION
     Dosage: 1.5 MG, 1X/DAY
     Route: 048
     Dates: start: 20120218, end: 20120218

REACTIONS (6)
  - COLD SWEAT [None]
  - INSOMNIA [None]
  - ANXIETY [None]
  - HOT FLUSH [None]
  - MENSTRUATION DELAYED [None]
  - DIZZINESS [None]
